FAERS Safety Report 9125242 (Version 1)
Quarter: 2013Q1

REPORT INFORMATION
  Report Type: Spontaneous
  Country: VE (occurrence: VE)
  Receive Date: 20130227
  Receipt Date: 20130227
  Transmission Date: 20140127
  Serious: Yes (Other)
  Sender: FDA-Public Use
  Company Number: PHHY2011VE87973

PATIENT
  Age: 65 Year
  Sex: Female

DRUGS (3)
  1. ACLASTA [Suspect]
     Indication: OSTEOPOROSIS
     Dosage: 5MG /ONCE A YEAR
     Route: 042
     Dates: start: 2009
  2. ACLASTA [Suspect]
     Dosage: 5MG /ONCE A YEAR
     Route: 042
     Dates: start: 2010
  3. CALCIUM [Concomitant]
     Indication: OSTEOPOROSIS
     Dosage: UNK MG, DAILY
     Route: 048

REACTIONS (4)
  - Bone cyst [Not Recovered/Not Resolved]
  - Bone pain [Not Recovered/Not Resolved]
  - Pain in extremity [Not Recovered/Not Resolved]
  - Myalgia [Not Recovered/Not Resolved]
